FAERS Safety Report 9765702 (Version 1)
Quarter: 2013Q4

REPORT INFORMATION
  Report Type: Spontaneous
  Country: US (occurrence: US)
  Receive Date: 20131217
  Receipt Date: 20131217
  Transmission Date: 20140711
  Serious: No
  Sender: FDA-Public Use
  Company Number: US-GLAXOSMITHKLINE-A1010833A

PATIENT
  Age: 63 Year
  Sex: Female
  Weight: 51.8 kg

DRUGS (10)
  1. VOTRIENT [Suspect]
     Dosage: 800MG PER DAY
     Route: 048
     Dates: end: 20130121
  2. NEURONTIN [Concomitant]
  3. TEMODAR [Concomitant]
  4. ONDANSETRON [Concomitant]
  5. PROCHLORPERAZINE [Concomitant]
  6. MORPHINE SULFATE [Concomitant]
  7. MAGNESIUM [Concomitant]
  8. VIT D [Concomitant]
  9. IRON PLUS [Concomitant]
  10. VITAMIN B COMPLEX 100 [Concomitant]

REACTIONS (2)
  - Blood glucose increased [Unknown]
  - Pain in extremity [Unknown]
